FAERS Safety Report 12355956 (Version 3)
Quarter: 2018Q3

REPORT INFORMATION
  Report Type: Report from Study
  Country: US (occurrence: US)
  Receive Date: 20160511
  Receipt Date: 20180817
  Transmission Date: 20181010
  Serious: Yes (Hospitalization, Other)
  Sender: FDA-Public Use
  Company Number: US-ACTELION-A-NJ2016-134227

PATIENT
  Age: 68 Year
  Sex: Female
  Weight: 48.73 kg

DRUGS (3)
  1. OPSUMIT [Suspect]
     Active Substance: MACITENTAN
     Dosage: UNK
     Route: 048
  2. OPSUMIT [Suspect]
     Active Substance: MACITENTAN
     Indication: PULMONARY ARTERIAL HYPERTENSION
     Dosage: 10 MG, QD
     Route: 048
     Dates: start: 20160316
  3. ADCIRCA [Concomitant]
     Active Substance: TADALAFIL

REACTIONS (15)
  - Transfusion [Unknown]
  - Red blood cell count decreased [Unknown]
  - Dyspnoea [Unknown]
  - Internal haemorrhage [Unknown]
  - Dizziness exertional [Recovering/Resolving]
  - Nervousness [Recovering/Resolving]
  - Neutrophil count increased [Unknown]
  - Sluggishness [Unknown]
  - Rectal haemorrhage [Not Recovered/Not Resolved]
  - Allergic transfusion reaction [Unknown]
  - Haemoglobin decreased [Unknown]
  - Dizziness [Unknown]
  - Haematocrit decreased [Unknown]
  - Headache [Unknown]
  - Anaemia [Unknown]

NARRATIVE: CASE EVENT DATE: 20160404
